FAERS Safety Report 12269082 (Version 1)
Quarter: 2016Q2

REPORT INFORMATION
  Report Type: Other
  Country: US (occurrence: GH)
  Receive Date: 20160414
  Receipt Date: 20160414
  Transmission Date: 20160815
  Serious: Yes (Death)
  Sender: FDA-Public Use
  Company Number: GH-ACIC FINE CHEMICALS INC-1050574

PATIENT
  Age: 31 Year
  Sex: Female

DRUGS (19)
  1. MANNITOL. [Concomitant]
     Active Substance: MANNITOL
     Route: 041
  2. THIOPENTAL SODIUM. [Concomitant]
     Active Substance: THIOPENTAL SODIUM
     Route: 041
  3. MAGNESIUM SULFATE. [Concomitant]
     Active Substance: MAGNESIUM SULFATE
     Route: 041
  4. LACTATED RINGERS [Concomitant]
     Active Substance: CALCIUM CHLORIDE\POTASSIUM CHLORIDE\SODIUM CHLORIDE\SODIUM LACTATE
  5. PETHIDINE [Concomitant]
     Active Substance: MEPERIDINE
  6. VECURONIUM [Concomitant]
     Active Substance: VECURONIUM BROMIDE
     Route: 042
  7. DIAZEPAM. [Concomitant]
     Active Substance: DIAZEPAM
  8. DEXAMETHASONE. [Concomitant]
     Active Substance: DEXAMETHASONE
  9. LABETALOL [Concomitant]
     Active Substance: LABETALOL\LABETALOL HYDROCHLORIDE
  10. SUXAMETHONIUM [Concomitant]
     Active Substance: SUCCINYLCHOLINE
     Route: 042
  11. PHENYTOIN. [Concomitant]
     Active Substance: PHENYTOIN
  12. MAGNESIUM SULFATE. [Concomitant]
     Active Substance: MAGNESIUM SULFATE
     Route: 040
  13. VECURONIUM [Concomitant]
     Active Substance: VECURONIUM BROMIDE
     Route: 041
  14. MIDAZOLAM [Concomitant]
     Active Substance: MIDAZOLAM\MIDAZOLAM HYDROCHLORIDE
     Route: 041
  15. FENTANYL. [Concomitant]
     Active Substance: FENTANYL
     Route: 041
  16. THIOPENTAL SODIUM. [Concomitant]
     Active Substance: THIOPENTAL SODIUM
     Route: 042
  17. TRANEXAMIC ACID. [Suspect]
     Active Substance: TRANEXAMIC ACID
     Indication: DRUG ADMINISTRATION ERROR
     Route: 037
  18. PROPOFOL. [Concomitant]
     Active Substance: PROPOFOL
  19. AMIODARONE HCL [Concomitant]

REACTIONS (9)
  - Back pain [Fatal]
  - Tetany [Fatal]
  - Status epilepticus [Recovered/Resolved]
  - Muscle spasms [Fatal]
  - Ventricular tachycardia [Fatal]
  - Tachycardia [Fatal]
  - Myoclonus [Recovered/Resolved]
  - Seizure [Recovered/Resolved]
  - Hypertensive crisis [Fatal]
